FAERS Safety Report 24587523 (Version 2)
Quarter: 2024Q4

REPORT INFORMATION
  Report Type: Spontaneous
  Country: US (occurrence: US)
  Receive Date: 20241107
  Receipt Date: 20241220
  Transmission Date: 20250115
  Serious: Yes (Other)
  Sender: ALEMBIC
  Company Number: US-ALEMBIC PHARMACUETICALS LIMITED-2024SCAL001580

PATIENT

DRUGS (1)
  1. CLONIDINE HYDROCHLORIDE [Suspect]
     Active Substance: CLONIDINE HYDROCHLORIDE
     Indication: Drug withdrawal syndrome neonatal
     Dosage: 1 UG/KG/DOSE
     Route: 065

REACTIONS (3)
  - Bradycardia neonatal [Unknown]
  - Hypothermia neonatal [Unknown]
  - Product use in unapproved indication [Unknown]
